FAERS Safety Report 12466640 (Version 2)
Quarter: 2016Q3

REPORT INFORMATION
  Report Type: Spontaneous
  Country: US (occurrence: US)
  Receive Date: 20160615
  Receipt Date: 20160901
  Transmission Date: 20161109
  Serious: Yes (Other)
  Sender: FDA-Public Use
  Company Number: US-ASTRAZENECA-2016SE61451

PATIENT
  Age: 65 Year
  Sex: Female

DRUGS (21)
  1. CALTRATE [Concomitant]
     Active Substance: CALCIUM CARBONATE
     Dosage: 600+0 600-400 MG-UNIT TABS, ONCE A DAY
     Route: 048
  2. XOPENEX [Concomitant]
     Active Substance: LEVALBUTEROL HYDROCHLORIDE
     Dosage: 0.63 MG/3ML NEBU, AS DIRECTED
  3. XOPENEX HFA [Concomitant]
     Active Substance: LEVALBUTEROL TARTRATE
     Dosage: 45 MCG/ACT AERO, AS DIRECTED
  4. ENALAPRIL MALEATE. [Concomitant]
     Active Substance: ENALAPRIL MALEATE
     Route: 048
  5. FUROSEMIDE. [Concomitant]
     Active Substance: FUROSEMIDE
     Dosage: 40.0MG UNKNOWN
     Route: 048
  6. NEURONTIN [Concomitant]
     Active Substance: GABAPENTIN
     Dosage: 100 MG, AS DIRECTED.
     Route: 048
  7. BUTALBITAL ACETAMINOPHEN [Concomitant]
     Dosage: 50-325 MG TABS, AS DIRECTED
     Route: 048
  8. FLAXSEED [Concomitant]
     Active Substance: FLAX SEED
     Route: 048
  9. ANASTROZOLE. [Suspect]
     Active Substance: ANASTROZOLE
     Route: 048
  10. AFINITOR [Concomitant]
     Active Substance: EVEROLIMUS
     Indication: BREAST CANCER
     Dates: start: 20120317
  11. CLOTRIMAZOLE. [Concomitant]
     Active Substance: CLOTRIMAZOLE
  12. TRAMADOL ACETAMINOPHEN [Concomitant]
     Dosage: 37.5-325 MG TABLET
     Route: 048
  13. SPIRONOLACTONE. [Concomitant]
     Active Substance: SPIRONOLACTONE
     Route: 048
  14. SYMBICORT [Concomitant]
     Active Substance: BUDESONIDE\FORMOTEROL FUMARATE DIHYDRATE
     Dosage: 160-4.5 MCG
  15. AROMASIN [Concomitant]
     Active Substance: EXEMESTANE
     Route: 048
  16. NAPROXEN. [Concomitant]
     Active Substance: NAPROXEN
     Route: 048
  17. BIOTIN [Concomitant]
     Active Substance: BIOTIN
     Dosage: 7500 MCG TABS, ONCE A DAY
     Route: 048
  18. LIPITOR [Concomitant]
     Active Substance: ATORVASTATIN CALCIUM
     Route: 048
  19. NITROGLYCERIN. [Concomitant]
     Active Substance: NITROGLYCERIN
     Dosage: 0.4 MG/SPRAY SOLN, AS NEEDED
  20. PRADAXA [Concomitant]
     Active Substance: DABIGATRAN ETEXILATE MESYLATE
     Route: 048
  21. TIZANIDINE HCI [Concomitant]
     Active Substance: TIZANIDINE HYDROCHLORIDE
     Dosage: 2 MG CAPS, AS DIRECTED
     Route: 048

REACTIONS (20)
  - Anal incontinence [Unknown]
  - Cardiomegaly [Unknown]
  - Epistaxis [Unknown]
  - Rash generalised [Unknown]
  - Fatigue [Unknown]
  - Goitre [Unknown]
  - Decreased appetite [Unknown]
  - Nausea [Unknown]
  - Cardiac failure [Unknown]
  - Depression [Unknown]
  - Hepatic steatosis [Unknown]
  - Vomiting [Unknown]
  - Metastases to the mediastinum [Unknown]
  - Gait disturbance [Unknown]
  - Diarrhoea [Unknown]
  - Metastases to lymph nodes [Unknown]
  - Headache [Unknown]
  - Breast cancer recurrent [Unknown]
  - Metastases to lung [Unknown]
  - Arthralgia [Unknown]
